FAERS Safety Report 13592285 (Version 2)
Quarter: 2017Q3

REPORT INFORMATION
  Report Type: Spontaneous
  Country: ES (occurrence: ES)
  Receive Date: 20170530
  Receipt Date: 20170925
  Transmission Date: 20171127
  Serious: Yes (Hospitalization, Other)
  Sender: FDA-Public Use
  Company Number: ES-GILEAD-2017-0274316

PATIENT
  Age: 76 Year
  Sex: Male

DRUGS (11)
  1. RISEDRONATE [Concomitant]
     Active Substance: RISEDRONATE SODIUM
  2. GLUCOSAMINE [Concomitant]
     Active Substance: GLUCOSAMINE
  3. ESPIRONOLACTON [Concomitant]
  4. LORAZEPAM. [Concomitant]
     Active Substance: LORAZEPAM
  5. OMEPRAZOLE. [Concomitant]
     Active Substance: OMEPRAZOLE
  6. ENALAPRIL [Concomitant]
     Active Substance: ENALAPRIL
  7. ZOLMITRIPTAN. [Concomitant]
     Active Substance: ZOLMITRIPTAN
  8. HARVONI [Suspect]
     Active Substance: LEDIPASVIR\SOFOSBUVIR
     Indication: PRODUCT USED FOR UNKNOWN INDICATION
     Dosage: UNK
     Route: 065
  9. TORASEMIDE [Concomitant]
     Active Substance: TORSEMIDE
  10. IDEOS [Concomitant]
     Active Substance: CALCIUM CARBONATE\CHOLECALCIFEROL
  11. BISOPROLOL [Concomitant]
     Active Substance: BISOPROLOL

REACTIONS (1)
  - Congestive cardiomyopathy [Unknown]
